FAERS Safety Report 12370102 (Version 2)
Quarter: 2016Q2

REPORT INFORMATION
  Report Type: Spontaneous
  Country: US (occurrence: US)
  Receive Date: 20160516
  Receipt Date: 20160609
  Transmission Date: 20160815
  Serious: Yes (Other)
  Sender: FDA-Public Use
  Company Number: US-009507513-1605USA005721

PATIENT
  Sex: Female

DRUGS (15)
  1. BETAMETHASONE DIPROPIONATE. [Suspect]
     Active Substance: BETAMETHASONE DIPROPIONATE
     Dosage: UNK
  2. ASPIRIN. [Concomitant]
     Active Substance: ASPIRIN
  3. AMLODIPINE [Concomitant]
     Active Substance: AMLODIPINE BESYLATE
  4. GABAPENTIN. [Concomitant]
     Active Substance: GABAPENTIN
     Dosage: 1 IN THE MORNING AND 2 AT NIGHT
  5. ANTIVERT (OLD FORMULA) [Concomitant]
  6. TYLENOL [Concomitant]
     Active Substance: ACETAMINOPHEN
  7. NORVASC [Concomitant]
     Active Substance: AMLODIPINE BESYLATE
  8. FLONASE [Concomitant]
     Active Substance: FLUTICASONE PROPIONATE
  9. TOPROL XL [Concomitant]
     Active Substance: METOPROLOL SUCCINATE
  10. LEVOTHYROXINE SODIUM. [Suspect]
     Active Substance: LEVOTHYROXINE SODIUM
     Dosage: UNK
     Route: 048
  11. DYAZIDE [Concomitant]
     Active Substance: HYDROCHLOROTHIAZIDE\TRIAMTERENE
  12. PRINIVIL [Suspect]
     Active Substance: LISINOPRIL
     Dosage: UNK
     Route: 048
  13. MOBIC [Concomitant]
     Active Substance: MELOXICAM
     Dosage: 15 MG, QD
  14. VITAMINS (UNSPECIFIED) [Concomitant]
     Active Substance: VITAMINS
  15. PAXIL [Concomitant]
     Active Substance: PAROXETINE HYDROCHLORIDE

REACTIONS (16)
  - Rib fracture [Unknown]
  - Poor quality sleep [Unknown]
  - Sciatica [Unknown]
  - Kyphosis [Unknown]
  - Scoliosis [Unknown]
  - Muscular weakness [Unknown]
  - Spinal compression fracture [Unknown]
  - Lumbar spinal stenosis [Unknown]
  - Asthenia [Unknown]
  - Osteoporosis [Unknown]
  - Spinal pain [Unknown]
  - Limb discomfort [Unknown]
  - Dizziness [Unknown]
  - Dysstasia [Unknown]
  - Musculoskeletal discomfort [Unknown]
  - Mobility decreased [Unknown]
